FAERS Safety Report 8294673-3 (Version None)
Quarter: 2012Q2

REPORT INFORMATION
  Report Type: 
  Country: None (occurrence: None)
  Receive Date: 20120418
  Receipt Date: 20120404
  Transmission Date: 20120825
  Serious: Yes (Disabling, Other)
  Sender: FDA-Public Use
  Company Number: CH-ASTELLAS-2012EU002637

PATIENT
  Age: 75 Year
  Sex: Female

DRUGS (15)
  1. PROGRAF [Interacting]
     Dosage: 3 MG, UID/QD
     Route: 048
     Dates: start: 20101209
  2. PROGRAF [Suspect]
     Indication: RENAL TRANSPLANT
     Dosage: 1 DF, UID/QD
     Route: 048
     Dates: start: 20020101
  3. ALLOPURINOL [Concomitant]
     Dosage: 150 MEQ/ML, UID/QD
     Route: 065
  4. PROGRAF [Interacting]
     Dosage: 3.5 MG, UID/QD
     Route: 048
     Dates: start: 20110325
  5. PROGRAF [Interacting]
     Dosage: 4 MG, UID/QD
     Route: 048
     Dates: start: 20111208
  6. PROGRAF [Interacting]
     Dosage: 3 MG, UID/QD
     Route: 048
     Dates: start: 20120103
  7. TENORMIN [Concomitant]
     Dosage: 25 MG, UID/QD
     Route: 065
  8. PROGRAF [Interacting]
     Dosage: 6 MG, UID/QD
     Route: 048
     Dates: start: 20110401
  9. PROGRAF [Interacting]
     Dosage: 4 MG, UID/QD
     Route: 048
     Dates: start: 20110408
  10. FLOXAPEN [Interacting]
     Indication: STAPHYLOCOCCAL INFECTION
     Dosage: 2 G, TID
     Route: 040
     Dates: start: 20110319, end: 20110330
  11. AMILORIDE HCL AND HYDROCHLOROTHIAZIDE [Concomitant]
     Dosage: 1 DF, UID/QD
     Route: 065
  12. MARCUMAR [Concomitant]
     Dosage: 3 MG, PRN
     Route: 065
  13. PROGRAF [Interacting]
     Dosage: 3 MG, UID/QD
     Route: 048
     Dates: start: 20110321
  14. PROGRAF [Interacting]
     Dosage: 4 MG, UID/QD
     Route: 048
     Dates: start: 20110603
  15. ZESTRIL [Concomitant]
     Dosage: 30 MG, UID/QD
     Route: 065

REACTIONS (3)
  - RENAL FAILURE CHRONIC [None]
  - DRUG INTERACTION [None]
  - STAPHYLOCOCCAL INFECTION [None]
